FAERS Safety Report 7717920-2 (Version None)
Quarter: 2011Q3

REPORT INFORMATION
  Report Type: 
  Country: None (occurrence: None)
  Receive Date: 20110830
  Receipt Date: 20110819
  Transmission Date: 20111222
  Serious: Yes (Hospitalization)
  Sender: FDA-Public Use
  Company Number: DE-JNJFOC-20110808390

PATIENT
  Sex: Male

DRUGS (2)
  1. ZYTIGA [Suspect]
     Route: 048
  2. ZYTIGA [Suspect]
     Indication: PROSTATE CANCER METASTATIC
     Route: 048
     Dates: start: 20110512

REACTIONS (1)
  - PLEURAL EFFUSION [None]
